FAERS Safety Report 7383630-7 (Version None)
Quarter: 2011Q1

REPORT INFORMATION
  Report Type: 
  Country: None (occurrence: None)
  Receive Date: 20110330
  Receipt Date: 20110323
  Transmission Date: 20110831
  Serious: Yes (Other)
  Sender: FDA-Public Use
  Company Number: FR-JNJFOC-20110208253

PATIENT
  Age: 36 Year
  Sex: Female
  Weight: 60 kg

DRUGS (4)
  1. METHYLPREDNISOLONE [Suspect]
     Route: 042
  2. REMICADE [Suspect]
     Indication: CROHN'S DISEASE
     Dosage: 5 MG/KG
     Route: 042
  3. METHYLPREDNISOLONE [Suspect]
     Indication: PREMEDICATION
     Route: 042
  4. REMICADE [Suspect]
     Dosage: 5 MG/KG
     Route: 042

REACTIONS (8)
  - VOMITING [None]
  - MALAISE [None]
  - HYPERHIDROSIS [None]
  - FATIGUE [None]
  - HYPOTHERMIA [None]
  - NAUSEA [None]
  - NIGHT SWEATS [None]
  - COLD SWEAT [None]
